FAERS Safety Report 5150587-9 (Version None)
Quarter: 2006Q4

REPORT INFORMATION
  Report Type: 
  Country: None (occurrence: None)
  Receive Date: 20061114
  Receipt Date: 20061107
  Transmission Date: 20070319
  Serious: Yes (Hospitalization)
  Sender: FDA-Public Use
  Company Number: US-BRISTOL-MYERS SQUIBB COMPANY-13568894

PATIENT
  Age: 50 Year
  Sex: Female
  Weight: 61 kg

DRUGS (10)
  1. CETUXIMAB [Suspect]
     Indication: CERVIX CARCINOMA
     Route: 042
     Dates: start: 20060824, end: 20060824
  2. CISPLATIN [Suspect]
     Indication: CERVIX CARCINOMA
  3. RADIOTHERAPY [Suspect]
     Indication: CERVIX CARCINOMA
     Dates: start: 20060822
  4. OXYCONTIN [Concomitant]
     Route: 048
  5. OXYCODONE HCL [Concomitant]
     Route: 048
  6. ONDANSETRON HCL [Concomitant]
  7. LOMOTIL [Concomitant]
     Route: 048
  8. VENLAFAXINE HCL [Concomitant]
     Route: 048
  9. LEVOTHYROXINE SODIUM [Concomitant]
     Route: 048
  10. TIOTROPIUM BROMIDE [Concomitant]
     Route: 055

REACTIONS (1)
  - GASTROENTERITIS RADIATION [None]
